FAERS Safety Report 18996617 (Version 1)
Quarter: 2021Q1

REPORT INFORMATION
  Report Type: Spontaneous
  Country: US (occurrence: US)
  Receive Date: 20210310
  Receipt Date: 20210310
  Transmission Date: 20210420
  Serious: Yes (Hospitalization)
  Sender: FDA-Public Use
  Company Number: None

PATIENT
  Age: 71 Year
  Sex: Female

DRUGS (25)
  1. ARICEPT [Concomitant]
     Active Substance: DONEPEZIL HYDROCHLORIDE
  2. CYANOCOBALAM [Concomitant]
     Active Substance: CYANOCOBALAMIN
  3. GILENYA [Suspect]
     Active Substance: FINGOLIMOD HYDROCHLORIDE
     Indication: MULTIPLE SCLEROSIS
     Route: 048
     Dates: start: 20180118
  4. VITAMIN C [Suspect]
     Active Substance: ASCORBIC ACID
  5. DOCUSATE SOD [Concomitant]
  6. TOPROL XL [Suspect]
     Active Substance: METOPROLOL SUCCINATE
  7. PREVACID [Concomitant]
     Active Substance: LANSOPRAZOLE
  8. PROVIGIL [Suspect]
     Active Substance: MODAFINIL
  9. SPIRONOLACT [Suspect]
     Active Substance: SPIRONOLACTONE
  10. KLOR?CON M10 [Concomitant]
     Active Substance: POTASSIUM CHLORIDE
  11. SPIRONOLACT [Concomitant]
     Active Substance: SPIRONOLACTONE
  12. TOPROL XL [Concomitant]
     Active Substance: METOPROLOL SUCCINATE
  13. LASIX [Suspect]
     Active Substance: FUROSEMIDE
  14. PREVACID [Suspect]
     Active Substance: LANSOPRAZOLE
  15. PRIMIDONE. [Suspect]
     Active Substance: PRIMIDONE
  16. ATORVASTATIN [Concomitant]
     Active Substance: ATORVASTATIN
  17. MYRBETRIQ [Concomitant]
     Active Substance: MIRABEGRON
  18. PRIMIDONE. [Concomitant]
     Active Substance: PRIMIDONE
  19. BACLOFEN. [Concomitant]
     Active Substance: BACLOFEN
  20. PROVIGIL [Concomitant]
     Active Substance: MODAFINIL
  21. MYRBETRIQ [Suspect]
     Active Substance: MIRABEGRON
  22. LASIX [Concomitant]
     Active Substance: FUROSEMIDE
  23. VITAMIN C [Concomitant]
     Active Substance: ASCORBIC ACID
  24. VITAMIN D3 [Concomitant]
     Active Substance: CHOLECALCIFEROL
  25. VITAMIN D3 [Suspect]
     Active Substance: CHOLECALCIFEROL

REACTIONS (1)
  - COVID-19 [None]

NARRATIVE: CASE EVENT DATE: 20210125
